FAERS Safety Report 5085313-5 (Version None)
Quarter: 2006Q3

REPORT INFORMATION
  Report Type: 
  Country: None (occurrence: None)
  Receive Date: 20060817
  Receipt Date: 20060525
  Transmission Date: 20061208
  Serious: Yes (Other)
  Sender: FDA-Public Use
  Company Number: 2006030420

PATIENT
  Age: 46 Year
  Sex: Female

DRUGS (1)
  1. BEXTRA [Suspect]
     Indication: JOINT EFFUSION
     Dosage: 20 MG (20 MG, 1 IN 1 D); ORAL
     Route: 048
     Dates: start: 20030806

REACTIONS (5)
  - CHILLS [None]
  - DERMATITIS ATOPIC [None]
  - FATIGUE [None]
  - HERPES ZOSTER [None]
  - STEVENS-JOHNSON SYNDROME [None]
